FAERS Safety Report 7894303-6 (Version None)
Quarter: 2011Q4

REPORT INFORMATION
  Report Type: 
  Country: None (occurrence: None)
  Receive Date: 20111104
  Receipt Date: 20111028
  Transmission Date: 20120403
  Serious: Yes (Other)
  Sender: FDA-Public Use
  Company Number: US-AMGEN-USASP2011056195

PATIENT
  Age: 63 Year
  Sex: Female

DRUGS (2)
  1. ENBREL [Suspect]
     Indication: RHEUMATOID ARTHRITIS
     Dosage: 50 MG, QWK
     Dates: start: 20021104
  2. PREDNISONE [Suspect]
     Indication: DYSPNOEA
     Dosage: UNK

REACTIONS (4)
  - ABDOMINAL PAIN UPPER [None]
  - PHARYNGITIS STREPTOCOCCAL [None]
  - PAIN IN EXTREMITY [None]
  - DYSPNOEA [None]
